FAERS Safety Report 13912282 (Version 1)
Quarter: 2017Q3

REPORT INFORMATION
  Report Type: Spontaneous
  Country: US (occurrence: US)
  Receive Date: 20170828
  Receipt Date: 20170828
  Transmission Date: 20171127
  Serious: No
  Sender: FDA-Public Use
  Company Number: US-ROCHE-GNE324300

PATIENT
  Age: 8 Year
  Sex: Male

DRUGS (2)
  1. NUTROPIN [Suspect]
     Active Substance: SOMATROPIN
     Route: 065
  2. NUTROPIN [Suspect]
     Active Substance: SOMATROPIN
     Indication: PRODUCT USED FOR UNKNOWN INDICATION
     Route: 065
     Dates: start: 20110829

REACTIONS (2)
  - Headache [Unknown]
  - Injection site pain [Unknown]

NARRATIVE: CASE EVENT DATE: 20110902
